FAERS Safety Report 6599744-5 (Version None)
Quarter: 2010Q1

REPORT INFORMATION
  Report Type: 
  Country: None (occurrence: None)
  Receive Date: 20100224
  Receipt Date: 20100209
  Transmission Date: 20100710
  Serious: Yes (Death)
  Sender: FDA-Public Use
  Company Number: HR-SANOFI-AVENTIS-2010SA008101

PATIENT
  Age: 75 Year
  Sex: Male
  Weight: 66 kg

DRUGS (8)
  1. AFLIBERCEPT [Suspect]
     Route: 042
     Dates: start: 20091028, end: 20091028
  2. AFLIBERCEPT [Suspect]
     Route: 042
     Dates: start: 20100202, end: 20100202
  3. DOCETAXEL [Suspect]
     Route: 042
     Dates: start: 20091028, end: 20091028
  4. DOCETAXEL [Suspect]
     Route: 042
     Dates: start: 20100202, end: 20100202
  5. PREDNISONE [Suspect]
     Route: 048
     Dates: start: 20091028, end: 20100202
  6. BISOPROLOL [Concomitant]
     Dates: start: 20081015
  7. ATORVASTATIN CALCIUM [Concomitant]
     Dates: start: 20081015
  8. IDROCLOROTIAZIDE W/RAMIPRIL [Concomitant]
     Dates: start: 20081015

REACTIONS (1)
  - FEBRILE NEUTROPENIA [None]
